FAERS Safety Report 25475692 (Version 1)
Quarter: 2025Q2

REPORT INFORMATION
  Report Type: Report from Study
  Country: FR (occurrence: FR)
  Receive Date: 20250624
  Receipt Date: 20250624
  Transmission Date: 20250716
  Serious: Yes (Death, Other)
  Sender: ASTELLAS
  Company Number: FR-ASTELLAS-2022US042348

PATIENT
  Age: 59 Year
  Sex: Male

DRUGS (4)
  1. ENFORTUMAB VEDOTIN-EJFV [Suspect]
     Active Substance: ENFORTUMAB VEDOTIN-EJFV
     Indication: Transitional cell carcinoma
     Route: 042
     Dates: start: 20221011, end: 20221026
  2. ENFORTUMAB VEDOTIN-EJFV [Suspect]
     Active Substance: ENFORTUMAB VEDOTIN-EJFV
     Indication: Metastases to liver
  3. NEURONTIN [Concomitant]
     Active Substance: GABAPENTIN
     Indication: Product used for unknown indication
     Dosage: 100 MG, THRICE DAILY
     Route: 065
  4. OXYCONTIN [Concomitant]
     Active Substance: OXYCODONE HYDROCHLORIDE
     Indication: Product used for unknown indication
     Dosage: 10 MG, TWICE DAILY (IN THE MORNING AND IN THE EVENING)
     Route: 065

REACTIONS (5)
  - Metabolic encephalopathy [Fatal]
  - Diabetic ketoacidosis [Not Recovered/Not Resolved]
  - Candida infection [Not Recovered/Not Resolved]
  - Stomatitis [Recovered/Resolved]
  - Erythema [Unknown]
